FAERS Safety Report 7797953-0 (Version None)
Quarter: 2011Q4

REPORT INFORMATION
  Report Type: 
  Country: None (occurrence: None)
  Receive Date: 20111005
  Receipt Date: 20110926
  Transmission Date: 20120403
  Serious: Yes (Life-Threatening, Hospitalization)
  Sender: FDA-Public Use
  Company Number: US-GLAXOSMITHKLINE-A0946334A

PATIENT
  Age: 16 Year
  Sex: Female

DRUGS (6)
  1. AMITIZA [Concomitant]
     Dates: end: 20110902
  2. ABILIFY [Suspect]
     Indication: BIPOLAR DISORDER
     Dosage: 10MG PER DAY
     Dates: start: 20110727, end: 20110903
  3. MIRALAX [Concomitant]
  4. RISPERIDONE [Concomitant]
  5. ELAVIL [Concomitant]
  6. LAMICTAL [Suspect]
     Indication: PRODUCT USED FOR UNKNOWN INDICATION
     Dosage: 25MG TWICE PER DAY
     Dates: start: 20110701, end: 20110903

REACTIONS (10)
  - AFFECTIVE DISORDER [None]
  - SUICIDE ATTEMPT [None]
  - ANGER [None]
  - MOOD SWINGS [None]
  - DEPRESSION [None]
  - BLOOD PRESSURE DECREASED [None]
  - HEART RATE INCREASED [None]
  - BIPOLAR DISORDER [None]
  - MULTIPLE DRUG OVERDOSE INTENTIONAL [None]
  - SUICIDAL IDEATION [None]
